FAERS Safety Report 8657516 (Version 3)
Quarter: 2013Q4

REPORT INFORMATION
  Report Type: Spontaneous
  Country: US (occurrence: US)
  Receive Date: 20120710
  Receipt Date: 20131101
  Transmission Date: 20140711
  Serious: No
  Sender: FDA-Public Use
  Company Number: US-009507513-2012SP019543

PATIENT
  Age: 23 Year
  Sex: Female
  Weight: 47.63 kg

DRUGS (1)
  1. NUVARING [Suspect]
     Indication: CONTRACEPTION
     Dosage: UNK UNK, QM
     Route: 067
     Dates: start: 20120314, end: 20120411

REACTIONS (1)
  - Nausea [Recovered/Resolved]
